FAERS Safety Report 8500371 (Version 2)
Quarter: 2012Q4

REPORT INFORMATION
  Report Type: 
  Country: AU (occurrence: AU)
  Receive Date: 20120409
  Receipt Date: 20120910
  Transmission Date: 20130627
  Serious: Yes (Other)
  Sender: FDA-Public Use
  Company Number: AU-ABBOTT-12P-008-0921796-00

PATIENT
  Age: 60 Year
  Sex: Male

DRUGS (3)
  1. HUMIRA 40 MG/ 0.8 ML PRE-FILLED SYRINGE [Suspect]
     Indication: PSORIASIS
     Dates: start: 200911, end: 201104
  2. COVERSYL [Concomitant]
     Indication: HYPERTENSION
  3. EFEXOR [Concomitant]
     Indication: DEPRESSION

REACTIONS (4)
  - Renal failure acute [Recovering/Resolving]
  - Systemic lupus erythematosus [Unknown]
  - IgA nephropathy [Unknown]
  - Hypertension [Unknown]
